FAERS Safety Report 23793825 (Version 1)
Quarter: 2024Q2

REPORT INFORMATION
  Report Type: Spontaneous
  Country: US (occurrence: None)
  Receive Date: 20240426
  Receipt Date: 20240426
  Transmission Date: 20240716
  Serious: No
  Sender: FDA-Public Use
  Company Number: None

PATIENT
  Age: 72 Year
  Sex: Female
  Weight: 74.93 kg

DRUGS (2)
  1. LYNPARZA [Suspect]
     Active Substance: OLAPARIB
     Indication: Endometrial cancer
     Dosage: FREQUENCY : TWICE A DAY;?
     Route: 048
     Dates: start: 20240329
  2. TRUQAP [Suspect]
     Active Substance: CAPIVASERTIB
     Indication: Endometrial cancer
     Dosage: OTHER FREQUENCY : D1-4 8-11 15-18,22;?
     Route: 048
     Dates: start: 20240329

REACTIONS (6)
  - Insomnia [None]
  - Malaise [None]
  - Lymphadenopathy [None]
  - Pain in extremity [None]
  - Hypotension [None]
  - Peripheral swelling [None]

NARRATIVE: CASE EVENT DATE: 20240410
